FAERS Safety Report 16377042 (Version 2)
Quarter: 2019Q3

REPORT INFORMATION
  Report Type: Spontaneous
  Country: US (occurrence: US)
  Receive Date: 20190531
  Receipt Date: 20190715
  Transmission Date: 20191004
  Serious: No
  Sender: FDA-Public Use
  Company Number: US-PFIZER INC-2019229272

PATIENT
  Age: 63 Year
  Sex: Male

DRUGS (2)
  1. AMITRIPTYLINE [Suspect]
     Active Substance: AMITRIPTYLINE
     Indication: NEURALGIA
     Dosage: 175 MG, DAILY (EVERY MORNING; LONG TERM)
  2. EFFEXOR XR [Suspect]
     Active Substance: VENLAFAXINE HYDROCHLORIDE
     Indication: DEPRESSION
     Dosage: 75 MG, 1X/DAY (EVERY MORNING)
     Route: 048

REACTIONS (3)
  - Decreased appetite [Recovered/Resolved]
  - Sedation [Recovered/Resolved]
  - Dry mouth [Recovered/Resolved]

NARRATIVE: CASE EVENT DATE: 201705
